FAERS Safety Report 10497179 (Version 3)
Quarter: 2015Q2

REPORT INFORMATION
  Report Type: Spontaneous
  Country: US (occurrence: US)
  Receive Date: 20141006
  Receipt Date: 20150625
  Transmission Date: 20150821
  Serious: Yes (Other)
  Sender: FDA-Public Use
  Company Number: US-AMGEN-USASL2014075119

PATIENT
  Age: 55 Year
  Sex: Female

DRUGS (1)
  1. ENBREL [Suspect]
     Active Substance: ETANERCEPT
     Indication: RHEUMATOID ARTHRITIS
     Dosage: 50 MG, QWK
     Route: 065
     Dates: start: 19990801

REACTIONS (14)
  - Muscular weakness [Recovered/Resolved]
  - Nasal septum disorder [Recovered/Resolved]
  - Impaired healing [Recovered/Resolved]
  - Arthritis [Unknown]
  - Precancerous skin lesion [Recovered/Resolved]
  - Musculoskeletal stiffness [Not Recovered/Not Resolved]
  - Arthralgia [Not Recovered/Not Resolved]
  - Actinic keratosis [Recovered/Resolved]
  - Back pain [Not Recovered/Not Resolved]
  - Cartilage atrophy [Unknown]
  - Rheumatoid vasculitis [Recovered/Resolved]
  - Pain [Not Recovered/Not Resolved]
  - Sinusitis [Not Recovered/Not Resolved]
  - Localised infection [Recovered/Resolved]

NARRATIVE: CASE EVENT DATE: 2006
